FAERS Safety Report 15540090 (Version 1)
Quarter: 2018Q4

REPORT INFORMATION
  Report Type: Report from Study
  Country: FR (occurrence: FR)
  Receive Date: 20181023
  Receipt Date: 20181023
  Transmission Date: 20190205
  Serious: Yes (Death, Other)
  Sender: FDA-Public Use
  Company Number: FR-ROCHE-2201506

PATIENT

DRUGS (2)
  1. PREDNISONE. [Suspect]
     Active Substance: PREDNISONE
     Indication: PROPHYLAXIS AGAINST TRANSPLANT REJECTION
     Route: 065
  2. MYCOPHENOLATE MOFETIL. [Suspect]
     Active Substance: MYCOPHENOLATE MOFETIL
     Indication: PROPHYLAXIS AGAINST TRANSPLANT REJECTION
     Route: 065

REACTIONS (12)
  - Arterial disorder [Unknown]
  - Squamous cell carcinoma [Unknown]
  - Epstein-Barr virus associated lymphoma [Unknown]
  - Coronary artery disease [Unknown]
  - Leukopenia [Unknown]
  - Dyslipidaemia [Unknown]
  - Cerebrovascular accident [Unknown]
  - Diarrhoea [Unknown]
  - Central nervous system lymphoma [Fatal]
  - Hypertension [Unknown]
  - Hyperuricaemia [Unknown]
  - Sepsis [Fatal]
